FAERS Safety Report 18294736 (Version 1)
Quarter: 2020Q3

REPORT INFORMATION
  Report Type: Spontaneous
  Country: US (occurrence: US)
  Receive Date: 20200922
  Receipt Date: 20200922
  Transmission Date: 20201103
  Serious: No
  Sender: FDA-Public Use
  Company Number: US-GLOBAL BLOOD THERAPEUTICS INC-US-GBT-20-01464

PATIENT
  Age: 69 Year
  Sex: Male

DRUGS (6)
  1. HYDROXYUREA. [Concomitant]
     Active Substance: HYDROXYUREA
     Indication: PRODUCT USED FOR UNKNOWN INDICATION
  2. BUPRENORPHINE. [Concomitant]
     Active Substance: BUPRENORPHINE
     Indication: PRODUCT USED FOR UNKNOWN INDICATION
  3. OXBRYTA [Suspect]
     Active Substance: VOXELOTOR
     Dates: start: 2020, end: 2020
  4. OXBRYTA [Suspect]
     Active Substance: VOXELOTOR
     Dates: start: 2020
  5. ARANESP [Concomitant]
     Active Substance: DARBEPOETIN ALFA
     Indication: PRODUCT USED FOR UNKNOWN INDICATION
  6. OXBRYTA [Suspect]
     Active Substance: VOXELOTOR
     Indication: PRODUCT USED FOR UNKNOWN INDICATION
     Route: 048
     Dates: start: 20200514, end: 2020

REACTIONS (1)
  - Diarrhoea [Recovered/Resolved]

NARRATIVE: CASE EVENT DATE: 20200521
